FAERS Safety Report 9962700 (Version 2)
Quarter: 2014Q1

REPORT INFORMATION
  Report Type: Report from Study
  Country: US (occurrence: US)
  Receive Date: 20140305
  Receipt Date: 20140305
  Transmission Date: 20141002
  Serious: Yes (Hospitalization, Other)
  Sender: FDA-Public Use
  Company Number: US-ABBVIE-13P-163-1089622-00

PATIENT
  Age: 32 Year
  Sex: Male

DRUGS (3)
  1. HUMIRA [Suspect]
     Indication: COLITIS ULCERATIVE
     Dates: start: 201209
  2. HUMIRA [Suspect]
     Dates: start: 201304
  3. LIALDA [Concomitant]
     Indication: PRODUCT USED FOR UNKNOWN INDICATION

REACTIONS (5)
  - Rectal abscess [Recovering/Resolving]
  - Rectal abscess [Recovered/Resolved]
  - Rectal abscess [Unknown]
  - Abdominal pain upper [Unknown]
  - Rectal haemorrhage [Unknown]
